FAERS Safety Report 6646072-5 (Version None)
Quarter: 2010Q1

REPORT INFORMATION
  Report Type: 
  Country: None (occurrence: None)
  Receive Date: 20100323
  Receipt Date: 20100311
  Transmission Date: 20100710
  Serious: Yes (Other)
  Sender: FDA-Public Use
  Company Number: JP-JNJFOC-20100103546

PATIENT
  Sex: Female
  Weight: 45 kg

DRUGS (4)
  1. DOXORUBICIN HCL [Suspect]
     Indication: UTERINE CANCER
     Route: 042
  2. DOXORUBICIN HCL [Suspect]
     Route: 042
  3. DAI KENCHU TO [Concomitant]
     Route: 048
  4. PARAPLATIN [Concomitant]
     Route: 042

REACTIONS (2)
  - INTESTINAL OBSTRUCTION [None]
  - PLATELET COUNT DECREASED [None]
